FAERS Safety Report 4767669-3 (Version None)
Quarter: 2005Q3

REPORT INFORMATION
  Report Type: 
  Country: None (occurrence: None)
  Receive Date: 20050912
  Receipt Date: 20041111
  Transmission Date: 20060218
  Serious: Yes (Hospitalization)
  Sender: FDA-Public Use
  Company Number: 207019

PATIENT
  Age: 77 Year
  Sex: Male
  Weight: 75 kg

DRUGS (18)
  1. RAPTIVA [Suspect]
     Indication: PSORIASIS
     Dosage: 1 MG/KG, 1/WEEK, SUBCUTANEOUS
     Route: 058
     Dates: start: 20040212, end: 20040429
  2. RAPTIVA [Suspect]
     Indication: PSORIASIS
     Dosage: 1 MG/KG, 1/WEEK, SUBCUTANEOUS
     Route: 058
     Dates: start: 20040506, end: 20040527
  3. RAPTIVA [Suspect]
  4. CARVEDILOL [Concomitant]
  5. SIMVASTATIN [Concomitant]
  6. TOFRANIL [Concomitant]
  7. OXYBUTYNIN (OXYBUTYNIN CHLORIDE) [Concomitant]
  8. DOVONEX [Concomitant]
  9. FLUOCINONIDE (CLUOCINONIDE) [Concomitant]
  10. CIPRODEX (DEXAMETHASONE, CIPROFLOXACIN) [Concomitant]
  11. POLY-NEO-CORT (POLYMYXIN B SULFATE, NEOMYCIN SULFATE, HYDROCORTISONE) [Concomitant]
  12. CLINDAMYCIN (CLINDAMYCIN) [Concomitant]
  13. LEVOFLOXACIN [Concomitant]
  14. ASCRIPTIN (CALCIUM CARBONATE, MAGNESIUM HYDROXIDE, ASPIRIN, ALUMINIUM [Concomitant]
  15. RHINOCORT [Concomitant]
  16. NITROGLYCERIN [Concomitant]
  17. VANCOMYCIN HYDROCHLORIDE [Concomitant]
  18. LEVAQUIN [Concomitant]

REACTIONS (27)
  - ANAEMIA HAEMOLYTIC AUTOIMMUNE [None]
  - ASPARTATE AMINOTRANSFERASE INCREASED [None]
  - BLOOD LACTATE DEHYDROGENASE INCREASED [None]
  - CARDIAC DISORDER [None]
  - CARDIOMEGALY [None]
  - CATHETER RELATED INFECTION [None]
  - CEREBRAL ISCHAEMIA [None]
  - CORONARY ARTERY OCCLUSION [None]
  - CULTURE URINE POSITIVE [None]
  - DIZZINESS POSTURAL [None]
  - EJECTION FRACTION DECREASED [None]
  - HAEMOCHROMATOSIS [None]
  - HYPOTENSION [None]
  - INTERNATIONAL NORMALISED RATIO DECREASED [None]
  - LOSS OF CONSCIOUSNESS [None]
  - NEPHROTIC SYNDROME [None]
  - PHARMACEUTICAL PRODUCT COMPLAINT [None]
  - PLATELET COUNT DECREASED [None]
  - RENAL CYST [None]
  - RENAL FAILURE [None]
  - RENAL IMPAIRMENT [None]
  - SPLENOMEGALY [None]
  - STAPHYLOCOCCAL INFECTION [None]
  - STREPTOCOCCAL INFECTION [None]
  - SYNCOPE [None]
  - TROPONIN INCREASED [None]
  - VENTRICULAR HYPOKINESIA [None]
